FAERS Safety Report 18361516 (Version 1)
Quarter: 2020Q4

REPORT INFORMATION
  Report Type: Spontaneous
  Country: US (occurrence: US)
  Receive Date: 20201008
  Receipt Date: 20201008
  Transmission Date: 20210114
  Serious: No
  Sender: FDA-Public Use
  Company Number: US-EMD SERONO-9188474

PATIENT
  Age: 50 Year
  Sex: Male

DRUGS (1)
  1. SEROSTIM [Suspect]
     Active Substance: SOMATROPIN
     Indication: PRODUCT USED FOR UNKNOWN INDICATION
     Dosage: ONCE EVERY OTHER DAY
     Dates: start: 202004, end: 202006

REACTIONS (3)
  - Weight decreased [Recovering/Resolving]
  - Therapeutic response decreased [Unknown]
  - Off label use [Unknown]
